FAERS Safety Report 13412470 (Version 3)
Quarter: 2023Q4

REPORT INFORMATION
  Report Type: Spontaneous
  Country: US (occurrence: US)
  Receive Date: 20170406
  Receipt Date: 20231109
  Transmission Date: 20240110
  Serious: No
  Sender: FDA-Public Use
  Company Number: US-JNJFOC-20170309323

PATIENT
  Sex: Male

DRUGS (6)
  1. RISPERDAL [Suspect]
     Active Substance: RISPERIDONE
     Indication: Schizophrenia
     Dosage: 0.5 MG, 1MG, 2 MG AND 1.5 MG TWICE DAILY
     Route: 048
     Dates: start: 20080404, end: 20141212
  2. RISPERDAL [Suspect]
     Active Substance: RISPERIDONE
     Indication: Bipolar disorder
  3. INVEGA [Suspect]
     Active Substance: PALIPERIDONE
     Indication: Schizophrenia
     Route: 048
     Dates: start: 20110712, end: 20121020
  4. INVEGA [Suspect]
     Active Substance: PALIPERIDONE
     Indication: Bipolar disorder
  5. RISPERIDONE [Suspect]
     Active Substance: RISPERIDONE
     Indication: Schizophrenia
     Dosage: 1MG AND 2 MG.
     Route: 048
     Dates: start: 20121105, end: 20150105
  6. RISPERIDONE [Suspect]
     Active Substance: RISPERIDONE
     Indication: Bipolar disorder

REACTIONS (2)
  - Emotional disorder [Unknown]
  - Gynaecomastia [Unknown]
